FAERS Safety Report 6147972-5 (Version None)
Quarter: 2009Q2

REPORT INFORMATION
  Report Type: 
  Country: None (occurrence: None)
  Receive Date: 20090408
  Receipt Date: 20090330
  Transmission Date: 20091009
  Serious: Yes (Hospitalization)
  Sender: FDA-Public Use
  Company Number: TW-ROCHE-616250

PATIENT
  Sex: Male
  Weight: 58 kg

DRUGS (3)
  1. INTERFERON ALFA-2A [Suspect]
     Dosage: DOSE: 9(UNITE: ILLEGIBLE)
     Route: 058
     Dates: start: 20081120, end: 20090212
  2. INTERFERON ALFA-2A [Suspect]
     Route: 058
     Dates: start: 20090226, end: 20090309
  3. BEVACIZUMAB [Suspect]
     Route: 042
     Dates: start: 20081120, end: 20090226

REACTIONS (3)
  - ABDOMINAL DISTENSION [None]
  - HAEMATOCHEZIA [None]
  - LOWER GASTROINTESTINAL HAEMORRHAGE [None]
